FAERS Safety Report 10625406 (Version 1)
Quarter: 2014Q4

REPORT INFORMATION
  Report Type: Spontaneous
  Country: US (occurrence: None)
  Receive Date: 20141121
  Receipt Date: 20141121
  Transmission Date: 20150529
  Serious: Yes (Hospitalization)
  Sender: FDA-Public Use
  Company Number: AUR-APL-2013-09671

PATIENT
  Age: 70 Year
  Sex: Female
  Weight: 65.3 kg

DRUGS (9)
  1. VALACYCLOVIR [Concomitant]
     Active Substance: VALACYCLOVIR HYDROCHLORIDE
  2. FLEXERIL [Concomitant]
     Active Substance: CYCLOBENZAPRINE HYDROCHLORIDE
  3. NEXIUM [Concomitant]
     Active Substance: ESOMEPRAZOLE MAGNESIUM
  4. MELOXICAM. [Suspect]
     Active Substance: MELOXICAM
     Indication: OSTEOARTHRITIS
     Route: 048
     Dates: start: 20130901, end: 20131009
  5. HYDROCHLOROTHIAZIDE (HYDROCHLOROTHIAZIDE) [Concomitant]
     Active Substance: HYDROCHLOROTHIAZIDE
  6. ALLEGRA (FEXOFENADINE HYDROCHLORIDE) [Concomitant]
  7. METOPROLOL (METOPROLOL) [Concomitant]
     Active Substance: METOPROLOL
  8. NASONEX [Concomitant]
     Active Substance: MOMETASONE FUROATE
  9. EPINASTINE (EPINASTINE) [Concomitant]

REACTIONS (1)
  - Gastric ulcer perforation [None]

NARRATIVE: CASE EVENT DATE: 20131009
